FAERS Safety Report 24975058 (Version 2)
Quarter: 2025Q2

REPORT INFORMATION
  Report Type: Report from Study
  Country: CA (occurrence: CA)
  Receive Date: 20250217
  Receipt Date: 20250404
  Transmission Date: 20250716
  Serious: Yes (Other)
  Sender: SANDOZ
  Company Number: CA-SANDOZ-SDZ2024CA106259

PATIENT
  Sex: Female

DRUGS (1)
  1. ERELZI [Suspect]
     Active Substance: ETANERCEPT-SZZS
     Indication: Rheumatoid arthritis
     Dosage: 50 MG, QW, 25MG/0.5ML
     Route: 058
     Dates: start: 20241129

REACTIONS (13)
  - Nephrolithiasis [Unknown]
  - Trigger finger [Unknown]
  - General physical condition abnormal [Unknown]
  - Ear pain [Not Recovered/Not Resolved]
  - Nausea [Unknown]
  - Oropharyngeal pain [Unknown]
  - Nasal dryness [Unknown]
  - Sputum abnormal [Unknown]
  - Rhinorrhoea [Unknown]
  - Cough [Unknown]
  - Fatigue [Recovering/Resolving]
  - Pharyngitis [Unknown]
  - Pyrexia [Unknown]

NARRATIVE: CASE EVENT DATE: 20240101
